FAERS Safety Report 8067736-5 (Version None)
Quarter: 2012Q1

REPORT INFORMATION
  Report Type: 
  Country: None (occurrence: None)
  Receive Date: 20120124
  Receipt Date: 20120109
  Transmission Date: 20120608
  Serious: Yes (Death, Hospitalization, Disabling)
  Sender: FDA-Public Use
  Company Number: DE-CELGENEUS-062-50794-11031170

PATIENT
  Age: 71 Year
  Sex: Female
  Weight: 70 kg

DRUGS (15)
  1. DAUNORUBICIN HCL [Suspect]
     Dosage: 112 MILLIGRAM
     Route: 041
     Dates: start: 20110118, end: 20110120
  2. DAUNORUBICIN HCL [Suspect]
     Dosage: 112 MILLIGRAM
     Route: 041
     Dates: start: 20110211, end: 20110213
  3. CYTARABINE [Suspect]
     Dosage: 36 GRAM
     Route: 041
     Dates: start: 20110411
  4. VANCOMYCIN [Concomitant]
     Indication: PNEUMONIA
     Dosage: 2 GRAM
     Route: 041
     Dates: start: 20110129, end: 20110207
  5. VIDAZA [Suspect]
     Dosage: 135 MILLIGRAM
     Route: 058
     Dates: start: 20110406, end: 20110410
  6. CYTARABINE [Suspect]
     Route: 041
     Dates: start: 20110116, end: 20110122
  7. TAZOBACTAM [Concomitant]
     Indication: PNEUMONIA
     Dosage: 4.5 GRAM
     Route: 041
     Dates: start: 20110118, end: 20110128
  8. MEROPENEM [Concomitant]
     Indication: PNEUMONIA
     Dosage: 3 GRAM
     Route: 041
     Dates: start: 20110129, end: 20110207
  9. VANCOMYCIN [Concomitant]
     Dosage: 108
     Route: 041
     Dates: start: 20110211, end: 20110213
  10. MEROPENEM [Concomitant]
     Dosage: 108
     Route: 041
     Dates: start: 20110211, end: 20110213
  11. CYTARABINE [Suspect]
     Dosage: 186 MILLIGRAM
     Route: 041
     Dates: start: 20110209, end: 20110215
  12. TAZOBACTAM [Concomitant]
     Dosage: 108
     Route: 041
     Dates: start: 20110211, end: 20110213
  13. TAZOBACTAM [Concomitant]
     Route: 065
     Dates: start: 20110401, end: 20110401
  14. VIDAZA [Suspect]
     Dosage: 135 MILLIGRAM
     Route: 041
     Dates: start: 20110111, end: 20110115
  15. VIDAZA [Suspect]
     Dosage: 140 MILLIGRAM
     Route: 041
     Dates: start: 20110204, end: 20110208

REACTIONS (2)
  - MULTI-ORGAN FAILURE [None]
  - CYTOTOXIC CARDIOMYOPATHY [None]
